FAERS Safety Report 18920283 (Version 2)
Quarter: 2021Q1

REPORT INFORMATION
  Report Type: Spontaneous
  Country: ES (occurrence: ES)
  Receive Date: 20210222
  Receipt Date: 20210318
  Transmission Date: 20210420
  Serious: No
  Sender: FDA-Public Use
  Company Number: ES-CELLTRION INC.-2021ES001873

PATIENT

DRUGS (4)
  1. PERTUZUMAB. [Concomitant]
     Active Substance: PERTUZUMAB
     Indication: HER2 POSITIVE BREAST CANCER
     Dosage: UNK
     Dates: start: 201812
  2. PACLITAXEL. [Concomitant]
     Active Substance: PACLITAXEL
     Indication: HER2 POSITIVE BREAST CANCER
     Dosage: UNK
     Dates: start: 201812
  3. TAMOXIFEN [Concomitant]
     Active Substance: TAMOXIFEN
  4. TRASTUZUMAB (UNKNOWN) [Suspect]
     Active Substance: TRASTUZUMAB
     Indication: HER2 POSITIVE BREAST CANCER
     Dosage: UNK
     Route: 065
     Dates: start: 201812

REACTIONS (1)
  - Off label use [Unknown]
